FAERS Safety Report 20279605 (Version 1)
Quarter: 2021Q4

REPORT INFORMATION
  Report Type: Spontaneous
  Country: US (occurrence: None)
  Receive Date: 20211230
  Receipt Date: 20211230
  Transmission Date: 20220303
  Serious: No
  Sender: FDA-Public Use
  Company Number: None

PATIENT
  Age: 38 Year
  Sex: Female

DRUGS (1)
  1. SIROLIMUS [Suspect]
     Active Substance: SIROLIMUS
     Indication: Generalised anxiety disorder
     Dates: start: 20211105

REACTIONS (2)
  - COVID-19 [None]
  - Nausea [None]

NARRATIVE: CASE EVENT DATE: 20211230
